FAERS Safety Report 5859430-3 (Version None)
Quarter: 2008Q3

REPORT INFORMATION
  Report Type: 
  Country: None (occurrence: None)
  Receive Date: 20080827
  Receipt Date: 20080818
  Transmission Date: 20090109
  Serious: Yes (Hospitalization)
  Sender: FDA-Public Use
  Company Number: SE-AMGEN-US169051

PATIENT
  Sex: Female

DRUGS (4)
  1. ENBREL [Suspect]
     Indication: RHEUMATOID ARTHRITIS
     Dosage: 50 MG PER WEEK
     Route: 058
     Dates: start: 20040817, end: 20051109
  2. ASPIRIN [Concomitant]
     Dosage: NOT SPECIFIED
     Route: 065
  3. PLAVIX [Concomitant]
     Dosage: NOT SPECIFIED
     Route: 065
  4. ASPIRIN AND DIPYRIDAMOLE [Concomitant]
     Dosage: NOT SPECIFIED
     Route: 065

REACTIONS (2)
  - BREAST PAIN [None]
  - CEREBRAL INFARCTION [None]
